FAERS Safety Report 5393662-6 (Version None)
Quarter: 2007Q3

REPORT INFORMATION
  Report Type: 
  Country: None (occurrence: None)
  Receive Date: 20070723
  Receipt Date: 20070712
  Transmission Date: 20080115
  Serious: Yes (Other)
  Sender: FDA-Public Use
  Company Number: PHMT2006CA02143

PATIENT
  Age: 36 Year
  Sex: Female
  Weight: 111.11 kg

DRUGS (6)
  1. SANDOSTATIN LAR [Suspect]
     Indication: ACROMEGALY
     Dosage: 30 MG EVERY 28 DAYS
     Route: 030
     Dates: start: 20070101
  2. SANDOSTATIN LAR [Suspect]
     Dosage: 30 MG EVERY 28 DAYS
     Route: 030
     Dates: start: 20020101
  3. LISINOPRIL [Concomitant]
     Indication: HYPERTENSION
     Dosage: 10 MG, UNK
     Dates: start: 20030101, end: 20060901
  4. LABETALOL HCL [Concomitant]
     Indication: HYPERTENSION
     Dosage: 100 MG BID
     Dates: start: 20060901
  5. DRUG THERAPY NOS [Concomitant]
     Dosage: PRENATAL VITAMIN
     Dates: start: 20060901
  6. INSULIN [Concomitant]
     Dosage: NOVOROPID/NOVOLIN R
     Route: 058

REACTIONS (4)
  - CERVICAL INCOMPETENCE [None]
  - DRUG EXPOSURE DURING PREGNANCY [None]
  - GESTATIONAL DIABETES [None]
  - NORMAL NEWBORN [None]
